FAERS Safety Report 6767964-2 (Version None)
Quarter: 2010Q2

REPORT INFORMATION
  Report Type: 
  Country: None (occurrence: None)
  Receive Date: 20100614
  Receipt Date: 20100602
  Transmission Date: 20101027
  Serious: Yes (Life-Threatening, Hospitalization, Disabling, Other)
  Sender: FDA-Public Use
  Company Number: GB-ELI_LILLY_AND_COMPANY-GB201006000643

PATIENT
  Age: 66 Year
  Sex: Female

DRUGS (17)
  1. OLANZAPINE [Suspect]
     Indication: BIPOLAR I DISORDER
     Dosage: 5 MG, UNK
     Route: 048
  2. VENLAFAXINE [Concomitant]
     Indication: BIPOLAR I DISORDER
     Dosage: 75 MG, UNK
     Route: 048
  3. ADCAL-D3 [Concomitant]
  4. ASASANTIN /00580301/ [Concomitant]
  5. ASCORBIC ACID [Concomitant]
  6. CLOPIDOGREL [Concomitant]
  7. MOVICOL /01749801/ [Concomitant]
  8. NIQUITIN [Concomitant]
  9. NICOTINE [Concomitant]
  10. OMEPRAZOLE [Concomitant]
  11. PHENYTOIN [Concomitant]
  12. VALPROATE SODIUM [Concomitant]
  13. THIAMINE [Concomitant]
  14. VITAMIN B NOS [Concomitant]
  15. NICOTINAMIDE [Concomitant]
  16. RIBOFLAVIN TAB [Concomitant]
  17. THIAMINE HYDROCHLORIDE [Concomitant]

REACTIONS (1)
  - CEREBROVASCULAR ACCIDENT [None]
